FAERS Safety Report 7189565-7 (Version None)
Quarter: 2010Q4

REPORT INFORMATION
  Report Type: 
  Country: None (occurrence: None)
  Receive Date: 20101223
  Receipt Date: 20101214
  Transmission Date: 20110411
  Serious: Yes (Other)
  Sender: FDA-Public Use
  Company Number: US-BIOGENIDEC-2010BI044429

PATIENT
  Sex: Female

DRUGS (8)
  1. AVONEX [Suspect]
     Indication: MULTIPLE SCLEROSIS
     Route: 030
     Dates: start: 20071127
  2. DETROL LA [Concomitant]
     Route: 048
  3. WELLBUTRIN SR [Concomitant]
     Route: 048
  4. BACLOFEN [Concomitant]
  5. PAXIL [Concomitant]
     Route: 048
  6. PROVIGIL [Concomitant]
  7. CALCIUM [Concomitant]
  8. VITAMIN D [Concomitant]

REACTIONS (3)
  - GASTROINTESTINAL DISORDER [None]
  - GASTROINTESTINAL DISORDER POSTOPERATIVE [None]
  - MEGACOLON [None]
